FAERS Safety Report 6820990-7 (Version None)
Quarter: 2010Q3

REPORT INFORMATION
  Report Type: 
  Country: None (occurrence: None)
  Receive Date: 20100707
  Receipt Date: 20070806
  Transmission Date: 20110219
  Serious: No
  Sender: FDA-Public Use
  Company Number: US-PFIZER INC-2007065252

PATIENT
  Sex: Male
  Weight: 95.5 kg

DRUGS (4)
  1. ZOLOFT [Suspect]
     Indication: DEPRESSION
     Dates: start: 20000101
  2. SERTRALINE HCL [Suspect]
     Indication: DEPRESSION
     Dates: start: 20070401
  3. TYLENOL [Concomitant]
  4. ACETYLSALICYLIC ACID [Concomitant]

REACTIONS (3)
  - DISTURBANCE IN ATTENTION [None]
  - DRUG DOSE OMISSION [None]
  - HEADACHE [None]
